FAERS Safety Report 7562048-8 (Version None)
Quarter: 2011Q2

REPORT INFORMATION
  Report Type: 
  Country: None (occurrence: None)
  Receive Date: 20110622
  Receipt Date: 20080924
  Transmission Date: 20111010
  Serious: Yes (Death)
  Sender: FDA-Public Use
  Company Number: PHHY2008DE37524

PATIENT
  Sex: Female
  Weight: 86 kg

DRUGS (6)
  1. SANDOSTATIN LAR [Suspect]
     Indication: ACROMEGALY
     Dosage: 20 MG, UNK
     Route: 030
     Dates: start: 20080924
  2. NOVAROK [Concomitant]
     Dosage: 10 MG, UNK
  3. ASPIRIN [Concomitant]
  4. ACE INHIBITOR NOS [Concomitant]
  5. INSULIN [Concomitant]
  6. TORSEMIDE [Concomitant]

REACTIONS (3)
  - DEATH [None]
  - PAIN [None]
  - HEADACHE [None]
